FAERS Safety Report 9002144 (Version 1)
Quarter: 2013Q1

REPORT INFORMATION
  Report Type: Spontaneous
  Country: US (occurrence: None)
  Receive Date: 20130102
  Receipt Date: 20130102
  Transmission Date: 20140127
  Serious: Yes (Other)
  Sender: FDA-Public Use
  Company Number: None

PATIENT
  Age: 54 Year
  Sex: Male

DRUGS (1)
  1. TARCEVA [Suspect]
     Indication: PANCREATIC CARCINOMA
     Route: 048
     Dates: start: 20121005

REACTIONS (1)
  - Visual impairment [None]
